FAERS Safety Report 9657081 (Version 2)
Quarter: 2014Q1

REPORT INFORMATION
  Report Type: Spontaneous
  Country: US (occurrence: US)
  Receive Date: 20131030
  Receipt Date: 20140127
  Transmission Date: 20141002
  Serious: No
  Sender: FDA-Public Use
  Company Number: US-009507513-1310USA013461

PATIENT
  Age: 88 Year
  Sex: Female
  Weight: 53.61 kg

DRUGS (1)
  1. OXYTROL FOR WOMEN [Suspect]
     Indication: POLLAKIURIA
     Dosage: UNK, UNKNOWN
     Route: 062
     Dates: start: 201309, end: 201310

REACTIONS (1)
  - Drug ineffective [Unknown]
